FAERS Safety Report 14818049 (Version 1)
Quarter: 2018Q2

REPORT INFORMATION
  Report Type: Spontaneous
  Country: DE (occurrence: DE)
  Receive Date: 20180427
  Receipt Date: 20180427
  Transmission Date: 20180711
  Serious: Yes (Hospitalization)
  Sender: FDA-Public Use
  Company Number: DE-TEVA-2018-DE-886152

PATIENT
  Age: 53 Year
  Sex: Female

DRUGS (22)
  1. RISPERDAL [Suspect]
     Active Substance: RISPERIDONE
     Dosage: 2 MILLIGRAM DAILY;
     Dates: start: 20170306, end: 20170309
  2. REMERGIL [Concomitant]
     Active Substance: MIRTAZAPINE
     Dosage: 45 MILLIGRAM DAILY; OUTPATIENT
  3. RISPERDAL [Suspect]
     Active Substance: RISPERIDONE
     Dosage: 1 MILLIGRAM DAILY;
     Dates: start: 20170310, end: 20170313
  4. RISPERDAL [Suspect]
     Active Substance: RISPERIDONE
     Dosage: 2 MILLIGRAM DAILY;
     Dates: start: 20170206, end: 20170209
  5. TAVOR (LORAZEPAM) [Concomitant]
     Active Substance: LORAZEPAM
     Dosage: 3.5 MILLIGRAM DAILY;
     Dates: start: 20170224
  6. REMERGIL [Concomitant]
     Active Substance: MIRTAZAPINE
     Dosage: 30 MILLIGRAM DAILY;
     Dates: start: 20170206, end: 20170216
  7. REMERGIL [Concomitant]
     Active Substance: MIRTAZAPINE
     Dosage: 45 MILLIGRAM DAILY;
     Dates: start: 20170217
  8. VENLAFAXINE [Suspect]
     Active Substance: VENLAFAXINE HYDROCHLORIDE
     Dosage: 150 MILLIGRAM DAILY; ?OUTPATIENT - STAT. CONTINUE
  9. METFORMIN [Concomitant]
     Active Substance: METFORMIN HYDROCHLORIDE
     Dosage: 2000 MILLIGRAM DAILY; OUTPATIENT - STAT. CONTINUE
  10. TAVOR (LORAZEPAM) [Concomitant]
     Active Substance: LORAZEPAM
     Dosage: 2-3 MG
     Dates: start: 20170205, end: 20170206
  11. TAVOR (LORAZEPAM) [Concomitant]
     Active Substance: LORAZEPAM
     Dates: start: 20170222, end: 20170223
  12. QUETIAPIN [Concomitant]
     Active Substance: QUETIAPINE
     Dosage: 50 MILLIGRAM DAILY;
     Dates: start: 20170224
  13. SOLIAN [Concomitant]
     Active Substance: AMISULPRIDE
     Dosage: 200 MILLIGRAM DAILY;
     Dates: start: 20170301, end: 20170302
  14. SOLIAN [Concomitant]
     Active Substance: AMISULPRIDE
     Dosage: 400 MILLIGRAM DAILY;
     Dates: start: 20170303, end: 20170310
  15. LAMOTRIGIN [Concomitant]
     Active Substance: LAMOTRIGINE
     Dosage: 200 MILLIGRAM DAILY; OUTPATIENT
  16. QUETIAPIN RETARD [Concomitant]
     Active Substance: QUETIAPINE
     Dosage: 300 MILLIGRAM DAILY; ????OUTPATIENT UNTIL ADMISSION
  17. RISPERDAL [Suspect]
     Active Substance: RISPERIDONE
     Dosage: 4 MILLIGRAM DAILY;
     Dates: start: 20170210, end: 20170305
  18. TAVOR (LORAZEPAM) [Concomitant]
     Active Substance: LORAZEPAM
     Dosage: 3.5 MILLIGRAM DAILY;
     Dates: start: 20170207
  19. HYPNOREX [Concomitant]
     Active Substance: LITHIUM CARBONATE
     Dosage: 800 MILLIGRAM DAILY; OUTPATIENT - STAT. CONTINUE
  20. QUETIAPIN [Concomitant]
     Active Substance: QUETIAPINE
     Dosage: 75 MILLIGRAM DAILY; OUTPATIENT UNTIL ADMISSION
  21. SOLIAN [Concomitant]
     Active Substance: AMISULPRIDE
     Dosage: 500 MILLIGRAM DAILY;
     Dates: start: 20170311
  22. TAVOR (LORAZEPAM) [Concomitant]
     Active Substance: LORAZEPAM
     Dosage: 4.5 MILLIGRAM DAILY;
     Dates: start: 20170212, end: 20170221

REACTIONS (2)
  - Abdominal pain upper [Unknown]
  - Transaminases increased [Unknown]

NARRATIVE: CASE EVENT DATE: 20170309
